FAERS Safety Report 19758048 (Version 3)
Quarter: 2022Q1

REPORT INFORMATION
  Report Type: Report from Study
  Country: CN (occurrence: None)
  Receive Date: 20210827
  Receipt Date: 20220105
  Transmission Date: 20220424
  Serious: Yes (Hospitalization)
  Sender: FDA-Public Use
  Company Number: 2021A679542

PATIENT
  Age: 23397 Day
  Sex: Male

DRUGS (42)
  1. DURVALUMAB [Suspect]
     Active Substance: DURVALUMAB
     Indication: Non-small cell lung cancer
     Route: 042
     Dates: start: 20210804, end: 20210804
  2. DURVALUMAB [Suspect]
     Active Substance: DURVALUMAB
     Indication: Non-small cell lung cancer
     Route: 042
     Dates: start: 20210825, end: 20210825
  3. DURVALUMAB [Suspect]
     Active Substance: DURVALUMAB
     Indication: Non-small cell lung cancer
     Route: 042
     Dates: start: 20210915, end: 20210915
  4. DURVALUMAB [Suspect]
     Active Substance: DURVALUMAB
     Indication: Non-small cell lung cancer
     Route: 042
     Dates: start: 20211111, end: 20211111
  5. DURVALUMAB [Suspect]
     Active Substance: DURVALUMAB
     Indication: Non-small cell lung cancer
     Route: 042
     Dates: start: 20211223, end: 20211223
  6. CISPLATIN [Suspect]
     Active Substance: CISPLATIN
     Indication: Non-small cell lung cancer
     Route: 042
     Dates: start: 20210804, end: 20210804
  7. CISPLATIN [Suspect]
     Active Substance: CISPLATIN
     Indication: Non-small cell lung cancer
     Route: 042
     Dates: start: 20210825, end: 20210825
  8. CISPLATIN [Suspect]
     Active Substance: CISPLATIN
     Indication: Non-small cell lung cancer
     Route: 042
     Dates: start: 20210915, end: 20210915
  9. GEMCITABINE [Suspect]
     Active Substance: GEMCITABINE
     Indication: Non-small cell lung cancer
     Dosage: 1250 MG/M2
     Route: 042
     Dates: start: 20210804, end: 20210804
  10. GEMCITABINE [Suspect]
     Active Substance: GEMCITABINE
     Indication: Non-small cell lung cancer
     Dosage: 1250 MG/M2
     Route: 042
     Dates: start: 20210825, end: 20210825
  11. GEMCITABINE [Suspect]
     Active Substance: GEMCITABINE
     Indication: Non-small cell lung cancer
     Dosage: 1250 MG/M2
     Route: 042
     Dates: start: 20210902, end: 20210902
  12. GEMCITABINE [Suspect]
     Active Substance: GEMCITABINE
     Indication: Non-small cell lung cancer
     Dosage: 1250 MG/M2
     Route: 042
     Dates: start: 20210915, end: 20210915
  13. INVESTIGATIONAL PRODUCT [Suspect]
     Active Substance: INVESTIGATIONAL PRODUCT
     Indication: Non-small cell lung cancer
     Route: 065
  14. IPRATROPIUM BROMIDE [Concomitant]
     Active Substance: IPRATROPIUM BROMIDE
     Indication: Pneumonia
     Route: 055
     Dates: start: 20210724, end: 20210726
  15. BUDESONIDE [Concomitant]
     Active Substance: BUDESONIDE
     Indication: Pneumonia
     Route: 055
     Dates: start: 20210724, end: 20210726
  16. ACETYLCYSTEINE [Concomitant]
     Active Substance: ACETYLCYSTEINE
     Indication: Pneumonia
     Dosage: 1.000 BRANCH TWO TIMES A DAY
     Route: 055
     Dates: start: 20210724, end: 20210726
  17. LACTULOSE [Concomitant]
     Active Substance: LACTULOSE
     Indication: Constipation
     Route: 048
     Dates: start: 20210724, end: 20210726
  18. DICLOFENAC SODIUM [Concomitant]
     Active Substance: DICLOFENAC SODIUM
     Indication: Analgesic therapy
     Dosage: 25.0MG ONCE/SINGLE ADMINISTRATION
     Route: 048
     Dates: start: 20210723, end: 20210723
  19. DICLOFENAC SODIUM [Concomitant]
     Active Substance: DICLOFENAC SODIUM
     Indication: Analgesic therapy
     Dosage: 25.0MG ONCE/SINGLE ADMINISTRATION
     Route: 048
     Dates: start: 20210724, end: 20210731
  20. TRAMADOL [Concomitant]
     Active Substance: TRAMADOL
     Indication: Analgesic therapy
     Route: 048
     Dates: start: 20210724, end: 20210731
  21. TRAMADOL [Concomitant]
     Active Substance: TRAMADOL
     Indication: Analgesic therapy
     Dosage: 100.000 MG ST
     Route: 048
     Dates: start: 20210724, end: 20210726
  22. COMPOUND AMMONIUM CHLORIDE [Concomitant]
     Indication: Pneumonia
     Dosage: 10.0ML ONCE/SINGLE ADMINISTRATION
     Route: 048
     Dates: start: 20210724, end: 20210724
  23. INDOMETHACIN [Concomitant]
     Active Substance: INDOMETHACIN
     Indication: Analgesic therapy
     Dosage: 50.0MG ONCE/SINGLE ADMINISTRATION
     Route: 050
     Dates: start: 20210725, end: 20210725
  24. INDOMETHACIN [Concomitant]
     Active Substance: INDOMETHACIN
     Indication: Analgesic therapy
     Dosage: 50.0MG ONCE/SINGLE ADMINISTRATION
     Route: 050
     Dates: start: 20210726, end: 20210726
  25. COLCHICINE [Concomitant]
     Active Substance: COLCHICINE
     Indication: Analgesic therapy
     Route: 048
     Dates: start: 20210806, end: 20210812
  26. DEXAMETHASONE [Concomitant]
     Active Substance: DEXAMETHASONE
     Indication: Nausea
     Dosage: 5.0MG ONCE/SINGLE ADMINISTRATION
     Route: 042
     Dates: start: 20210804, end: 20210804
  27. AMIFOSTINE [Concomitant]
     Active Substance: AMIFOSTINE
     Indication: Kidney small
     Dosage: 0.8G ONCE/SINGLE ADMINISTRATION
     Route: 042
     Dates: start: 20210804, end: 20210804
  28. TORSEMIDE [Concomitant]
     Active Substance: TORSEMIDE
     Indication: Kidney small
     Dosage: 20.0MG ONCE/SINGLE ADMINISTRATION
     Route: 042
     Dates: start: 20210804, end: 20210804
  29. TORSEMIDE [Concomitant]
     Active Substance: TORSEMIDE
     Indication: Torsion of the urethra
     Dosage: 20.0MG ONCE/SINGLE ADMINISTRATION
     Route: 042
     Dates: start: 20210804, end: 20210804
  30. PROMETHAZINE [Concomitant]
     Active Substance: PROMETHAZINE HYDROCHLORIDE
     Indication: Nausea
     Dosage: 25.0MG ONCE/SINGLE ADMINISTRATION
     Route: 030
     Dates: start: 20210804, end: 20210804
  31. TROPISETRON [Concomitant]
     Active Substance: TROPISETRON
     Indication: Nausea
     Dosage: 5.0MG ONCE/SINGLE ADMINISTRATION
     Route: 042
     Dates: start: 20210804, end: 20210804
  32. TROPISETRON [Concomitant]
     Active Substance: TROPISETRON
     Indication: Vomiting
     Dosage: 5.0MG ONCE/SINGLE ADMINISTRATION
     Route: 042
     Dates: start: 20210804, end: 20210804
  33. VITAMIN C [Concomitant]
     Active Substance: ASCORBIC ACID
     Indication: Vitamin supplementation
     Dosage: 2.0G ONCE/SINGLE ADMINISTRATION
     Route: 042
     Dates: start: 20210804, end: 20210804
  34. 10% OF POTASSIUM CHLORIDE [Concomitant]
     Indication: Mineral supplementation
     Dosage: 20.0ML ONCE/SINGLE ADMINISTRATION
     Route: 042
     Dates: start: 20210804, end: 20210804
  35. THROMBOPOIETIN [Concomitant]
     Active Substance: THROMBOPOIETIN
     Indication: Plateletcrit
     Dates: start: 202108, end: 202108
  36. ARROSULFONATE SODIUM CHLORIDE INJECTION [Concomitant]
     Indication: Prophylaxis of nausea and vomiting
     Route: 065
     Dates: start: 202108, end: 202108
  37. HUMAN GRANULOTROPHIL STIMULATING FACTOR INJECTION, GLUTATHIONE FOR ... [Concomitant]
     Indication: Job change
     Route: 065
     Dates: start: 202108, end: 202108
  38. ESOMEPRAZOLE MAGNESIUM ENTERIC COATED TABLE [Concomitant]
     Indication: Protein total
     Dates: start: 202108, end: 202108
  39. GLUTATHIONE [Concomitant]
     Active Substance: GLUTATHIONE
     Indication: Prophylaxis
     Dosage: 1200.0G ONCE/SINGLE ADMINISTRATION
     Route: 042
     Dates: start: 20210804, end: 20210804
  40. GLUTATHIONE [Concomitant]
     Active Substance: GLUTATHIONE
     Indication: Prophylaxis
     Dosage: 1200.0G ONCE/SINGLE ADMINISTRATION
     Route: 042
     Dates: start: 20210805, end: 20210806
  41. GLUTATHIONE [Concomitant]
     Active Substance: GLUTATHIONE
     Indication: Prophylaxis
     Dosage: 1200.0G ONCE/SINGLE ADMINISTRATION
     Route: 042
     Dates: start: 20210825, end: 20210825
  42. GLUTATHIONE [Concomitant]
     Active Substance: GLUTATHIONE
     Indication: Prophylaxis
     Dosage: 1200.0G ONCE/SINGLE ADMINISTRATION
     Route: 042
     Dates: start: 20210902, end: 20210902

REACTIONS (1)
  - Myelosuppression [Recovered/Resolved]

NARRATIVE: CASE EVENT DATE: 20210810
